FAERS Safety Report 15529994 (Version 2)
Quarter: 2018Q4

REPORT INFORMATION
  Report Type: Report from Study
  Country: CZ (occurrence: CZ)
  Receive Date: 20181018
  Receipt Date: 20181102
  Transmission Date: 20190205
  Serious: Yes (Hospitalization)
  Sender: FDA-Public Use
  Company Number: CZ-PFIZER INC-2018267076

PATIENT
  Age: 71 Year
  Sex: Male
  Weight: 90 kg

DRUGS (11)
  1. BOSUTINIB [Suspect]
     Active Substance: BOSUTINIB
     Dosage: 400 MG, DAILY
     Dates: start: 20150427
  2. TAMSULOSIN HYDROCHLORIDE. [Concomitant]
     Active Substance: TAMSULOSIN HYDROCHLORIDE
     Indication: BENIGN PROSTATIC HYPERPLASIA
     Dosage: UNK UNK, DAILY
     Route: 048
     Dates: start: 2012
  3. AMLODIPINE BESILATE W/ATORVASTATIN /07040601/ [Concomitant]
     Indication: HYPERTENSION
     Dosage: UNK UNK, DAILY
     Route: 048
     Dates: start: 1990
  4. MOXONIDIN [Concomitant]
     Active Substance: MOXONIDINE
     Indication: HYPERTENSION
     Dosage: 10 MG, 2X/DAY
     Route: 048
     Dates: start: 20170428
  5. PERINDOPRIL ARGININE [Concomitant]
     Active Substance: PERINDOPRIL ARGININE
     Indication: HYPERTENSION
     Dosage: 10 MG, DAILY
     Route: 048
     Dates: start: 20170813
  6. LERCANIDIPINE HCL [Concomitant]
     Active Substance: LERCANIDIPINE HYDROCHLORIDE
     Indication: HYPERTENSION
     Dosage: 20 MG, UNK
     Route: 048
     Dates: start: 20170813
  7. OMEPRAZOLE. [Concomitant]
     Active Substance: OMEPRAZOLE
     Dosage: 20 MG, AS NEEDED
     Route: 048
     Dates: start: 20170814
  8. CALCIUM [Concomitant]
     Active Substance: CALCIUM
     Dosage: UNK UNK, 2X/DAY
     Route: 048
     Dates: start: 20150619
  9. NIMESULIDE [Concomitant]
     Active Substance: NIMESULIDE
     Dosage: 1 DF, AS NEEDED
     Route: 048
     Dates: start: 201608
  10. TRAMADOL HYDROCHLORID/PARACETAMOL [Concomitant]
     Active Substance: ACETAMINOPHEN\TRAMADOL HYDROCHLORIDE
     Dosage: 1 DF, AS NEEDED
     Route: 048
     Dates: start: 201608
  11. DIACEREIN [Concomitant]
     Active Substance: DIACEREIN
     Dosage: 1 DF, 2X/DAY
     Route: 048
     Dates: start: 20170122

REACTIONS (1)
  - Oropharyngitis fungal [Recovered/Resolved]

NARRATIVE: CASE EVENT DATE: 20180627
